FAERS Safety Report 8448996-5 (Version None)
Quarter: 2012Q2

REPORT INFORMATION
  Report Type: 
  Country: None (occurrence: None)
  Receive Date: 20120619
  Receipt Date: 20120615
  Transmission Date: 20120825
  Serious: Yes (Hospitalization)
  Sender: FDA-Public Use
  Company Number: US-JNJFOC-20120603718

PATIENT
  Sex: Female
  Weight: 104.33 kg

DRUGS (6)
  1. OXYCODONE HCL [Suspect]
     Indication: BACK PAIN
     Route: 065
  2. DURAGESIC-100 [Suspect]
     Indication: PAIN
     Route: 062
     Dates: start: 20120401, end: 20120401
  3. DURAGESIC-100 [Suspect]
     Route: 062
     Dates: start: 20120501
  4. FENTANYL-100 [Suspect]
     Indication: PAIN
     Route: 062
     Dates: start: 20120501, end: 20120501
  5. MORPHINE [Suspect]
     Route: 065
  6. MORPHINE [Suspect]
     Indication: BACK PAIN
     Route: 065

REACTIONS (8)
  - FEELING ABNORMAL [None]
  - WRONG TECHNIQUE IN DRUG USAGE PROCESS [None]
  - INSOMNIA [None]
  - VIITH NERVE PARALYSIS [None]
  - WHITE BLOOD CELL COUNT INCREASED [None]
  - PANIC ATTACK [None]
  - DYSPHEMIA [None]
  - PRODUCT QUALITY ISSUE [None]
